FAERS Safety Report 7844624 (Version 4)
Quarter: 2014Q1

REPORT INFORMATION
  Report Type: Spontaneous
  Country: US (occurrence: US)
  Receive Date: 20110307
  Receipt Date: 20140228
  Transmission Date: 20141002
  Serious: Yes (Hospitalization)
  Sender: FDA-Public Use
  Company Number: US-B.I. PHARMACEUTICALS,INC./RIDGEFIELD-2011-BP-05341BP

PATIENT
  Age: 85 Year
  Sex: Male
  Weight: 81.65 kg

DRUGS (10)
  1. PRADAXA [Suspect]
     Indication: ATRIAL FIBRILLATION
     Dosage: 150 MG
     Route: 048
     Dates: start: 20110119, end: 20120205
  2. LISINOPRIL [Suspect]
     Indication: PRODUCT USED FOR UNKNOWN INDICATION
     Route: 065
  3. METMAX [Concomitant]
     Indication: NEUROPATHY PERIPHERAL
     Route: 048
     Dates: start: 201010
  4. ASPIRIN [Concomitant]
     Indication: ATRIAL FIBRILLATION
     Dosage: 81 MG
     Route: 048
  5. MICARDIS [Concomitant]
     Route: 065
  6. COREG [Concomitant]
     Route: 065
  7. LIPITOR [Concomitant]
     Route: 065
  8. GLIPIZIDE [Concomitant]
     Route: 065
  9. TAMSULOSIN [Concomitant]
     Route: 065
  10. ACTOS [Concomitant]
     Route: 065

REACTIONS (8)
  - Gastrointestinal haemorrhage [Unknown]
  - Oesophageal haemorrhage [Recovered/Resolved]
  - Renal failure acute [Unknown]
  - Hernia [Unknown]
  - Cardiac failure congestive [Unknown]
  - Pleural effusion [Unknown]
  - Haematuria [Recovered/Resolved]
  - Neuropathy peripheral [Not Recovered/Not Resolved]
